FAERS Safety Report 10617385 (Version 2)
Quarter: 2015Q2

REPORT INFORMATION
  Report Type: Spontaneous
  Country: US (occurrence: US)
  Receive Date: 20141201
  Receipt Date: 20150608
  Transmission Date: 20150821
  Serious: Yes (Other)
  Sender: FDA-Public Use
  Company Number: US-BAYER-2014-175562

PATIENT
  Age: 38 Year
  Sex: Female
  Weight: 81.63 kg

DRUGS (2)
  1. MISOPROSTOL. [Concomitant]
     Active Substance: MISOPROSTOL
  2. MIRENA [Suspect]
     Active Substance: LEVONORGESTREL
     Indication: CONTRACEPTION
     Dosage: 20 MCG/24HR, CONT
     Route: 015
     Dates: start: 20080213, end: 20130502

REACTIONS (4)
  - Injury [None]
  - Uterine perforation [None]
  - Device use error [None]
  - Pain [None]

NARRATIVE: CASE EVENT DATE: 20130418
